FAERS Safety Report 9675521 (Version 1)
Quarter: 2013Q4

REPORT INFORMATION
  Report Type: Spontaneous
  Country: FR (occurrence: FR)
  Receive Date: 20131107
  Receipt Date: 20131107
  Transmission Date: 20140711
  Serious: Yes (Hospitalization)
  Sender: FDA-Public Use
  Company Number: FR-MERCK-1310FRA013320

PATIENT
  Age: 68 Year
  Sex: Female
  Weight: 86 kg

DRUGS (1)
  1. ORGARAN [Suspect]
     Indication: HEPARIN-INDUCED THROMBOCYTOPENIA
     Dosage: UNK
     Route: 042
     Dates: start: 20131011, end: 20131015

REACTIONS (3)
  - Condition aggravated [Not Recovered/Not Resolved]
  - Thrombocytopenia [Recovered/Resolved]
  - Deep vein thrombosis [Not Recovered/Not Resolved]
